FAERS Safety Report 19745987 (Version 1)
Quarter: 2021Q3

REPORT INFORMATION
  Report Type: Spontaneous
  Country: US (occurrence: US)
  Receive Date: 20210824
  Receipt Date: 20210824
  Transmission Date: 20211014
  Serious: Yes (Hospitalization, Disabling, Other)
  Sender: FDA-Public Use
  Company Number: None

PATIENT
  Age: 36 Year
  Sex: Female
  Weight: 136.08 kg

DRUGS (5)
  1. MIRENA [Suspect]
     Active Substance: LEVONORGESTREL
     Dates: start: 20190919, end: 20201023
  2. BUPROPION. [Concomitant]
     Active Substance: BUPROPION
  3. CETRIZINE [Concomitant]
     Active Substance: CETIRIZINE HYDROCHLORIDE
  4. MULTIVITAMIN [Concomitant]
     Active Substance: VITAMINS
  5. FISH OIL [Concomitant]
     Active Substance: FISH OIL

REACTIONS (5)
  - Maternal drugs affecting foetus [None]
  - Complication of pregnancy [None]
  - Maternal exposure timing unspecified [None]
  - Foetal hypokinesia [None]
  - Pregnancy with contraceptive device [None]

NARRATIVE: CASE EVENT DATE: 20201023
